FAERS Safety Report 17036065 (Version 1)
Quarter: 2019Q4

REPORT INFORMATION
  Report Type: Spontaneous
  Country: US (occurrence: US)
  Receive Date: 20191015
  Receipt Date: 20191015
  Transmission Date: 20200122
  Serious: Yes (Hospitalization)
  Sender: FDA-Public Use
  Company Number: None

PATIENT
  Age: 74 Year
  Sex: Female

DRUGS (21)
  1. VITAMIN D3 [Suspect]
     Active Substance: CHOLECALCIFEROL
  2. FLONASE ALGY SPR [Concomitant]
  3. JANUVA [Concomitant]
  4. MULTIPLE VIT [Concomitant]
  5. PROBIOTIC [Concomitant]
     Active Substance: PROBIOTICS NOS
  6. LOSARTAN AND HYDROCHLOROTHIAZIDE [Concomitant]
     Active Substance: HYDROCHLOROTHIAZIDE\LOSARTAN POTASSIUM
  7. ALBUTEROL. [Suspect]
     Active Substance: ALBUTEROL
  8. TUSSIN MAX SYP [Concomitant]
  9. VITAMIN B12 [Concomitant]
     Active Substance: CYANOCOBALAMIN
  10. CETIRIZINE [Concomitant]
     Active Substance: CETIRIZINE HYDROCHLORIDE
  11. FLOVENT DISK AER [Concomitant]
  12. BASAGLAR [Concomitant]
     Active Substance: INSULIN GLARGINE
  13. ESBRIET [Suspect]
     Active Substance: PIRFENIDONE
     Indication: IDIOPATHIC PULMONARY FIBROSIS
     Route: 048
     Dates: start: 20190822
  14. GABAPENTIN. [Concomitant]
     Active Substance: GABAPENTIN
  15. OMEPRAZOLE. [Concomitant]
     Active Substance: OMEPRAZOLE
  16. TYLENOL [Concomitant]
     Active Substance: ACETAMINOPHEN
  17. PROAIR HFA [Concomitant]
     Active Substance: ALBUTEROL SULFATE
  18. ATORVASTATIN [Concomitant]
     Active Substance: ATORVASTATIN
  19. IMPRAMINE POW HCL [Concomitant]
  20. NOVOLOG [Concomitant]
     Active Substance: INSULIN ASPART
  21. VOLTAREN [Concomitant]
     Active Substance: DICLOFENAC SODIUM

REACTIONS (4)
  - Dyspnoea [None]
  - Diarrhoea [None]
  - White blood cell count increased [None]
  - Product dosage form issue [None]

NARRATIVE: CASE EVENT DATE: 20191011
